FAERS Safety Report 22180689 (Version 1)
Quarter: 2023Q2

REPORT INFORMATION
  Report Type: Spontaneous
  Country: CA (occurrence: CA)
  Receive Date: 20230406
  Receipt Date: 20230406
  Transmission Date: 20230721
  Serious: Yes (Life-Threatening, Hospitalization)
  Sender: FDA-Public Use
  Company Number: None

PATIENT
  Age: 67 Year
  Sex: Male
  Weight: 89 kg

DRUGS (5)
  1. ROSUVASTATIN CALCIUM [Interacting]
     Active Substance: ROSUVASTATIN CALCIUM
     Indication: Dyslipidaemia
     Dosage: 1 EVERY 1 DAYS
     Route: 048
  2. ASPIRIN [Concomitant]
     Active Substance: ASPIRIN
  3. TICAGRELOR [Concomitant]
     Active Substance: TICAGRELOR
  4. PERINDOPRIL [Concomitant]
     Active Substance: PERINDOPRIL
  5. EZETIMIBE [Concomitant]
     Active Substance: EZETIMIBE

REACTIONS (6)
  - Aspartate aminotransferase increased [Recovered/Resolved]
  - Blood creatine phosphokinase increased [Recovered/Resolved]
  - Chromaturia [Recovered/Resolved]
  - Drug interaction [Unknown]
  - Glomerular filtration rate decreased [Recovered/Resolved]
  - Pain [Recovered/Resolved]
